FAERS Safety Report 8541001-1 (Version None)
Quarter: 2012Q3

REPORT INFORMATION
  Report Type: 
  Country: None (occurrence: None)
  Receive Date: 20120726
  Receipt Date: 20120222
  Transmission Date: 20120928
  Serious: No
  Sender: FDA-Public Use
  Company Number: US-ASTRAZENECA-2011SE48403

PATIENT
  Age: 63 Year
  Sex: Male
  Weight: 120.2 kg

DRUGS (23)
  1. SEROQUEL XR [Suspect]
     Indication: DEPRESSION
     Dosage: DAILY
     Route: 048
     Dates: start: 20100115, end: 20111219
  2. SEROQUEL XR [Suspect]
     Route: 048
     Dates: start: 20100101
  3. SEROQUEL XR [Suspect]
     Indication: SLEEP DISORDER
     Dosage: DAILY
     Route: 048
     Dates: start: 20100115, end: 20111219
  4. SEROQUEL XR [Suspect]
     Route: 048
  5. SEROQUEL XR [Suspect]
     Route: 048
     Dates: start: 20100301
  6. SEROQUEL XR [Suspect]
     Route: 048
     Dates: start: 20100101
  7. SEROQUEL XR [Suspect]
     Indication: BIPOLAR DISORDER
     Dosage: DAILY
     Route: 048
     Dates: start: 20100115, end: 20111219
  8. SEROQUEL XR [Suspect]
     Route: 048
     Dates: start: 20100101
  9. SEROQUEL XR [Suspect]
     Route: 048
     Dates: start: 20100401
  10. SEROQUEL XR [Suspect]
     Route: 048
     Dates: start: 20100401
  11. INDOMETHACIN [Concomitant]
  12. CLONAZEPAM [Concomitant]
  13. SEROQUEL XR [Suspect]
     Route: 048
     Dates: start: 20100301
  14. LISINOPRIL AND HYDROCHLOROTHIAZIDE [Concomitant]
  15. TRAZODONE HYDROCHLORIDE [Concomitant]
  16. LITHIUM CARBONATE [Concomitant]
     Indication: DEPRESSION
  17. SEROQUEL XR [Suspect]
     Route: 048
  18. SEROQUEL XR [Suspect]
     Route: 048
  19. CLONIDINE [Concomitant]
     Indication: HYPERTENSION
  20. SEROQUEL XR [Suspect]
     Route: 048
     Dates: start: 20100301
  21. SEROQUEL XR [Suspect]
     Route: 048
     Dates: start: 20100401
  22. ZOLPIDEM [Concomitant]
  23. DOXEPIN [Concomitant]
     Indication: DEPRESSION

REACTIONS (10)
  - DRY MOUTH [None]
  - HYPOAESTHESIA ORAL [None]
  - NASAL CONGESTION [None]
  - WEIGHT INCREASED [None]
  - SPEECH DISORDER [None]
  - DRUG PRESCRIBING ERROR [None]
  - INCORRECT DOSE ADMINISTERED [None]
  - DRUG INEFFECTIVE FOR UNAPPROVED INDICATION [None]
  - LIP DRY [None]
  - INSOMNIA [None]
